FAERS Safety Report 6527610-X (Version None)
Quarter: 2010Q1

REPORT INFORMATION
  Report Type: 
  Country: None (occurrence: None)
  Receive Date: 20100105
  Receipt Date: 20091230
  Transmission Date: 20100710
  Serious: Yes (Hospitalization)
  Sender: FDA-Public Use
  Company Number: PHHO2009ES13981

PATIENT
  Sex: Female

DRUGS (4)
  1. CERTICAN [Suspect]
     Indication: RENAL TRANSPLANT
     Dosage: 4 MG/24 HOURS
     Route: 048
     Dates: start: 20080630
  2. MYFORTIC [Suspect]
     Indication: RENAL TRANSPLANT
     Dosage: 320 MG, BID
     Route: 048
     Dates: start: 20080214
  3. TACROLIMUS [Suspect]
     Indication: RENAL TRANSPLANT
     Dosage: UNK
     Route: 048
  4. PREDNISONE [Concomitant]
     Indication: RENAL TRANSPLANT
     Dosage: UNK

REACTIONS (4)
  - DYSURIA [None]
  - ESCHERICHIA SEPSIS [None]
  - PYELONEPHRITIS [None]
  - PYREXIA [None]
